FAERS Safety Report 6617381-0 (Version None)
Quarter: 2010Q1

REPORT INFORMATION
  Report Type: 
  Country: None (occurrence: None)
  Receive Date: 20100307
  Receipt Date: 20100219
  Transmission Date: 20100710
  Serious: Yes (Hospitalization, Other)
  Sender: FDA-Public Use
  Company Number: GB-BAYER-200313651GDS

PATIENT
  Sex: Male
  Weight: 4.6 kg

DRUGS (5)
  1. ACETYLSALICYLIC ACID [Suspect]
     Indication: FALLOT'S TETRALOGY
     Route: 065
  2. DIAZOXIDE [Interacting]
     Indication: HYPERINSULINAEMIA
     Route: 065
  3. DIAZOXIDE [Interacting]
     Route: 065
  4. FRUSEMIDE [Interacting]
     Indication: FALLOT'S TETRALOGY
     Route: 065
  5. SPIRONOLACTONE [Interacting]
     Indication: FALLOT'S TETRALOGY
     Dosage: 0.4 MG/KG
     Route: 065

REACTIONS (2)
  - DRUG EFFECT INCREASED [None]
  - HYPERGLYCAEMIA [None]
